FAERS Safety Report 5652840-9 (Version None)
Quarter: 2008Q1

REPORT INFORMATION
  Report Type: 
  Country: None (occurrence: None)
  Receive Date: 20080131
  Receipt Date: 20070928
  Transmission Date: 20080703
  Serious: No
  Sender: FDA-Public Use
  Company Number: US200710000066

PATIENT
  Age: 52 Year
  Sex: Female
  Weight: 117.9 kg

DRUGS (5)
  1. BYETTA [Suspect]
     Indication: TYPE 2 DIABETES MELLITUS
     Dosage: 5 UG, 2/D, SUBCUTANEOUS
     Route: 058
     Dates: start: 20070910
  2. EXENATIDE 5MCG PEN, DISPOSABLE DEVICE (EXENATIDE PEN (5MCG)) PEN,DISPO [Concomitant]
  3. METFORMIN HCL [Concomitant]
  4. LANTUS [Concomitant]
  5. AVANDIA [Concomitant]

REACTIONS (6)
  - BACK PAIN [None]
  - DECREASED APPETITE [None]
  - DIARRHOEA [None]
  - NAUSEA [None]
  - VOMITING [None]
  - WEIGHT DECREASED [None]
